FAERS Safety Report 5339142-5 (Version None)
Quarter: 2007Q2

REPORT INFORMATION
  Report Type: 
  Country: None (occurrence: None)
  Receive Date: 20070530
  Receipt Date: 20070523
  Transmission Date: 20071010
  Serious: Yes (Hospitalization)
  Sender: FDA-Public Use
  Company Number: JP-ROXANE LABORATORIES, INC-2007-DE-01505GD

PATIENT
  Sex: Female

DRUGS (3)
  1. BUSCOPAN [Suspect]
     Indication: PREMEDICATION
     Route: 030
     Dates: start: 20050124, end: 20050124
  2. BUSCOPAN [Suspect]
     Indication: ENDOSCOPY UPPER GASTROINTESTINAL TRACT
  3. LIDOCAINE [Suspect]
     Indication: ENDOSCOPY UPPER GASTROINTESTINAL TRACT
     Dosage: 8% TOPICAL PHARYNGEAL LIDOCAINE SPRAY
     Dates: start: 20050124, end: 20050124

REACTIONS (1)
  - GLOBAL AMNESIA [None]
